FAERS Safety Report 19294748 (Version 1)
Quarter: 2021Q2

REPORT INFORMATION
  Report Type: Spontaneous
  Country: US (occurrence: US)
  Receive Date: 20210524
  Receipt Date: 20210524
  Transmission Date: 20210717
  Serious: No
  Sender: FDA-Public Use
  Company Number: US-ELI_LILLY_AND_COMPANY-US202105010456

PATIENT
  Age: 64 Year
  Sex: Female

DRUGS (1)
  1. INSULIN LISPRO LILLY 25LIS75NPL KWIKPEN/MIRIOPEN [Suspect]
     Active Substance: INSULIN LISPRO
     Indication: TYPE 2 DIABETES MELLITUS
     Dosage: UNK UNK, UNKNOWN
     Route: 065
     Dates: start: 2016

REACTIONS (4)
  - Sleep disorder due to general medical condition, insomnia type [Recovered/Resolved]
  - Arthralgia [Recovered/Resolved]
  - Hypokinesia [Recovered/Resolved]
  - Back pain [Recovered/Resolved]

NARRATIVE: CASE EVENT DATE: 202104
